FAERS Safety Report 11746450 (Version 1)
Quarter: 2015Q4

REPORT INFORMATION
  Report Type: Spontaneous
  Country: DE (occurrence: DE)
  Receive Date: 20151117
  Receipt Date: 20151117
  Transmission Date: 20160304
  Serious: Yes (Hospitalization, Other)
  Sender: FDA-Public Use
  Company Number: DE-MYLANLABS-2015M1039499

PATIENT

DRUGS (2)
  1. FUROSEMIDE. [Suspect]
     Active Substance: FUROSEMIDE
     Indication: BULIMIA NERVOSA
     Dosage: 180 MG/DAY FOR A LITTLE OVER 10 YEARS
     Route: 065
  2. FUROSEMIDE. [Suspect]
     Active Substance: FUROSEMIDE
     Dosage: LOWER DOSES HAD BEEN SUFFICIENT IN THE BEGINNING
     Route: 065

REACTIONS (10)
  - Drug tolerance [Recovering/Resolving]
  - Anxiety [Recovering/Resolving]
  - Drug withdrawal syndrome [Recovering/Resolving]
  - Intentional overdose [Recovering/Resolving]
  - Drug abuse [Recovering/Resolving]
  - Oedema [Recovering/Resolving]
  - Restlessness [Recovering/Resolving]
  - Drug dependence [Recovering/Resolving]
  - Hypokalaemia [Recovered/Resolved]
  - Nephrocalcinosis [Unknown]
